FAERS Safety Report 8017889-X (Version None)
Quarter: 2011Q4

REPORT INFORMATION
  Report Type: 
  Country: None (occurrence: None)
  Receive Date: 20111227
  Receipt Date: 20111205
  Transmission Date: 20120403
  Serious: Yes (Life-Threatening, Hospitalization, Disabling)
  Sender: FDA-Public Use
  Company Number: 2011SE73432

PATIENT
  Age: 58 Year
  Sex: Female

DRUGS (2)
  1. GANCICLOVIR SODIUM [Suspect]
     Indication: CYTOMEGALOVIRUS COLITIS
  2. FOSCAVIR [Suspect]
     Dosage: INTRAVENOUS (NOT OTHERWISE SPECIFIED)
     Route: 042

REACTIONS (1)
  - CYTOMEGALOVIRUS COLITIS [None]
